FAERS Safety Report 9059660 (Version 1)
Quarter: 2013Q1

REPORT INFORMATION
  Report Type: Spontaneous
  Country: DE (occurrence: DE)
  Receive Date: 20130212
  Receipt Date: 20130212
  Transmission Date: 20140127
  Serious: Yes (Other)
  Sender: FDA-Public Use
  Company Number: DE-AMGEN-DEUSP2013008418

PATIENT
  Sex: Female

DRUGS (2)
  1. ENBREL [Suspect]
     Indication: RHEUMATOID ARTHRITIS
     Dosage: 50 MG, WEEKLY
     Dates: start: 20111108, end: 20120701
  2. PREDNISOLONE [Concomitant]
     Dosage: UNK UNK, UNK

REACTIONS (2)
  - Gallbladder disorder [Unknown]
  - Hepatic cirrhosis [Unknown]
